FAERS Safety Report 7024517-9 (Version None)
Quarter: 2010Q4

REPORT INFORMATION
  Report Type: 
  Country: None (occurrence: None)
  Receive Date: 20101001
  Receipt Date: 20100927
  Transmission Date: 20110411
  Serious: Yes (Other)
  Sender: FDA-Public Use
  Company Number: A0884304A

PATIENT
  Age: 73 Year
  Sex: Male

DRUGS (16)
  1. CARVEDILOL [Suspect]
     Indication: PRODUCT USED FOR UNKNOWN INDICATION
     Dosage: 12.5MG TWICE PER DAY
     Route: 048
  2. MULTAQ [Suspect]
     Indication: ATRIAL FIBRILLATION
     Dosage: 400MG TWICE PER DAY
     Route: 048
     Dates: start: 20100801
  3. LASIX [Concomitant]
  4. DIOVAN [Concomitant]
  5. ELAVIL [Concomitant]
  6. XANAX [Concomitant]
  7. PRILOSEC [Concomitant]
  8. ASPIRIN [Concomitant]
  9. FLONASE [Concomitant]
  10. ADVAIR DISKUS 100/50 [Concomitant]
  11. ALBUTEROL [Concomitant]
  12. TIOTROPIUM BROMIDE [Concomitant]
  13. FISH OIL [Concomitant]
  14. VICODIN [Concomitant]
  15. NITROGLYCERIN [Concomitant]
  16. OXYGEN [Concomitant]

REACTIONS (7)
  - CARDIAC FAILURE [None]
  - CARDIAC FAILURE CONGESTIVE [None]
  - DYSPNOEA [None]
  - DYSPNOEA EXERTIONAL [None]
  - HEART RATE DECREASED [None]
  - ORTHOPNOEA [None]
  - RESPIRATORY DISORDER [None]
